FAERS Safety Report 8244822-8 (Version None)
Quarter: 2012Q1

REPORT INFORMATION
  Report Type: 
  Country: None (occurrence: None)
  Receive Date: 20120329
  Receipt Date: 20110520
  Transmission Date: 20120608
  Serious: No
  Sender: FDA-Public Use
  Company Number: US-MYLANLABS-2011S1010553

PATIENT
  Age: 77 Year
  Sex: Female

DRUGS (1)
  1. FENTANYL-100 [Suspect]
     Dosage: Q72H
     Route: 062

REACTIONS (2)
  - TREMOR [None]
  - FEELING ABNORMAL [None]
